FAERS Safety Report 6937781-9 (Version None)
Quarter: 2010Q3

REPORT INFORMATION
  Report Type: 
  Country: None (occurrence: None)
  Receive Date: 20100823
  Receipt Date: 20100816
  Transmission Date: 20110219
  Serious: Yes (Other)
  Sender: FDA-Public Use
  Company Number: BR-BRISTOL-MYERS SQUIBB COMPANY-15247265

PATIENT
  Age: 51 Year
  Sex: Female
  Weight: 80 kg

DRUGS (5)
  1. ORENCIA [Suspect]
     Indication: RHEUMATOID ARTHRITIS
  2. ACTEMRA [Suspect]
     Indication: RHEUMATOID ARTHRITIS
     Dosage: 01-DEC-2009, 01-FEB-2010 AND 01-APR-2010
     Route: 042
     Dates: start: 20091101
  3. CODATEN [Concomitant]
  4. DEFLAZACORT [Concomitant]
  5. CORTICOSTEROID [Concomitant]
     Indication: PREMEDICATION
     Route: 042

REACTIONS (6)
  - ARTHRALGIA [None]
  - GENITAL HERPES [None]
  - HYPERSENSITIVITY [None]
  - IMMUNODEFICIENCY [None]
  - RASH [None]
  - TOOTH ABSCESS [None]
